FAERS Safety Report 9267555 (Version 4)
Quarter: 2013Q4

REPORT INFORMATION
  Report Type: Spontaneous
  Country: JP (occurrence: JP)
  Receive Date: 20130502
  Receipt Date: 20131001
  Transmission Date: 20140711
  Serious: Yes (Hospitalization)
  Sender: FDA-Public Use
  Company Number: JP-GLAXOSMITHKLINE-B0887724A

PATIENT
  Age: 88 Year
  Sex: Female
  Weight: 50 kg

DRUGS (9)
  1. VALTREX [Suspect]
     Indication: HERPES ZOSTER
     Dosage: 1000MG THREE TIMES PER DAY
     Route: 048
     Dates: start: 20130321, end: 20130327
  2. AMOBAN [Suspect]
     Indication: PRODUCT USED FOR UNKNOWN INDICATION
     Dosage: 1IUAX PER DAY
     Route: 048
  3. LOXONIN [Suspect]
     Indication: ARTHRALGIA
     Dosage: 60MG THREE TIMES PER DAY
     Route: 048
  4. NORVASC [Concomitant]
     Dosage: 2.5MG PER DAY
     Route: 048
  5. LANSOPRAZOLE [Concomitant]
     Dosage: 15MG PER DAY
     Route: 048
  6. LAXOBERON [Concomitant]
     Dosage: 5MG PER DAY
     Route: 048
  7. ISALON [Concomitant]
     Dosage: 100MG THREE TIMES PER DAY
     Route: 048
  8. REMINYL [Concomitant]
     Dosage: 8MG TWICE PER DAY
     Route: 048
  9. SEROQUEL [Concomitant]
     Dosage: 25MG PER DAY
     Route: 048

REACTIONS (9)
  - Renal impairment [Recovered/Resolved]
  - Altered state of consciousness [Recovered/Resolved]
  - Cyanosis [Unknown]
  - Mouth breathing [Unknown]
  - Renal failure acute [Recovered/Resolved]
  - Hypophagia [Unknown]
  - Urine output decreased [Unknown]
  - Unresponsive to stimuli [Recovered/Resolved]
  - Renal disorder [Unknown]
